FAERS Safety Report 10077788 (Version 1)
Quarter: 2014Q2

REPORT INFORMATION
  Report Type: Spontaneous
  Country: US (occurrence: US)
  Receive Date: 20140414
  Receipt Date: 20140414
  Transmission Date: 20141212
  Serious: Yes (Other)
  Sender: FDA-Public Use
  Company Number: US-AMGEN-USASP2014026064

PATIENT
  Age: 61 Year
  Sex: Female

DRUGS (10)
  1. ENBREL [Suspect]
     Indication: RHEUMATOID ARTHRITIS
     Dosage: 50 MG, QWK
     Route: 058
     Dates: start: 2012, end: 2014
  2. METHOTREXATE [Concomitant]
     Dosage: UNK
  3. FOLIC ACID [Concomitant]
     Dosage: UNK
  4. CALTRATE D                         /01483701/ [Concomitant]
     Dosage: UNK
  5. ALEVE [Concomitant]
     Dosage: UNK
  6. MUCINEX [Concomitant]
     Dosage: UNK
  7. TYLENOL                            /00020001/ [Concomitant]
     Dosage: UNK
  8. VENTOLIN                           /00139501/ [Concomitant]
     Dosage: UNK
  9. VITAMIN E                          /00110501/ [Concomitant]
     Dosage: UNK
  10. EXEMESTANE [Concomitant]
     Dosage: UNK

REACTIONS (2)
  - Breast cancer [Recovered/Resolved]
  - Bronchitis [Not Recovered/Not Resolved]
